FAERS Safety Report 14473558 (Version 3)
Quarter: 2018Q1

REPORT INFORMATION
  Report Type: Spontaneous
  Country: JP (occurrence: JP)
  Receive Date: 20180201
  Receipt Date: 20180223
  Transmission Date: 20180509
  Serious: Yes (Death, Hospitalization, Other)
  Sender: FDA-Public Use
  Company Number: JP-AMGEN-JPNSP2018014112

PATIENT
  Age: 51 Year
  Sex: Male

DRUGS (12)
  1. VANCOMYCIN HYDROCHLORIDE. [Concomitant]
     Active Substance: VANCOMYCIN HYDROCHLORIDE
     Dosage: 500 MG, 2 TIMES/WK
     Route: 065
  2. HUMAN NORMAL IMMUNOGLOBULIN [Concomitant]
     Active Substance: HUMAN IMMUNOGLOBULIN G
     Dosage: UNK
     Route: 065
  3. REGPARA [Suspect]
     Active Substance: CINACALCET HYDROCHLORIDE
     Indication: BONE METABOLISM DISORDER
     Dosage: UNK
     Route: 048
  4. INOVAN [Suspect]
     Active Substance: DOPAMINE HYDROCHLORIDE
     Indication: PRODUCT USED FOR UNKNOWN INDICATION
     Dosage: UNK
     Route: 042
  5. IRBESARTAN. [Concomitant]
     Active Substance: IRBESARTAN
     Indication: HYPERTENSION
     Dosage: UNK
     Route: 048
  6. PRECIPITATED CALCIUM CARBONATE [Concomitant]
     Active Substance: CALCIUM CARBONATE
     Indication: BONE METABOLISM DISORDER
     Dosage: UNK
     Route: 048
  7. CLINDAMYCIN. [Concomitant]
     Active Substance: CLINDAMYCIN
     Dosage: UNK
  8. MEROPENEM. [Concomitant]
     Active Substance: MEROPENEM
     Dosage: 0.5 G, Q12H
     Route: 042
  9. THROMBOMODULIN ALFA RECOMBINANT [Concomitant]
     Active Substance: THROMBOMODULIN ALFA
     Dosage: UNK
     Route: 041
  10. FALECALCITRIOL [Concomitant]
     Active Substance: FALECALCITRIOL
     Indication: BONE METABOLISM DISORDER
     Dosage: UNK
     Route: 048
  11. LANTHANUM CARBONATE. [Concomitant]
     Active Substance: LANTHANUM CARBONATE
     Indication: BONE METABOLISM DISORDER
     Dosage: UNK
     Route: 048
  12. NORADRENALINE [Concomitant]
     Active Substance: NOREPINEPHRINE
     Dosage: UNK
     Route: 065

REACTIONS (5)
  - Ventricular fibrillation [Fatal]
  - Beta haemolytic streptococcal infection [Recovered/Resolved]
  - Endocarditis [Unknown]
  - Toxic shock syndrome streptococcal [Recovered/Resolved]
  - Cerebral artery embolism [Unknown]
